FAERS Safety Report 13509999 (Version 1)
Quarter: 2017Q2

REPORT INFORMATION
  Report Type: Spontaneous
  Country: US (occurrence: US)
  Receive Date: 20170503
  Receipt Date: 20170503
  Transmission Date: 20170830
  Serious: No
  Sender: FDA-Public Use
  Company Number: US-SA-2017SA061266

PATIENT

DRUGS (2)
  1. PRALUENT [Suspect]
     Active Substance: ALIROCUMAB
     Route: 065
  2. ALIROCUMAB PREFILLED PEN [Concomitant]
     Active Substance: ALIROCUMAB

REACTIONS (7)
  - Peripheral swelling [Unknown]
  - Facial pain [Unknown]
  - Pruritus [Unknown]
  - Headache [Unknown]
  - Muscle spasms [Unknown]
  - Swollen tongue [Unknown]
  - Feeling of body temperature change [Unknown]
